FAERS Safety Report 6306359-2 (Version None)
Quarter: 2009Q3

REPORT INFORMATION
  Report Type: 
  Country: None (occurrence: None)
  Receive Date: 20090812
  Receipt Date: 20090801
  Transmission Date: 20100115
  Serious: Yes (Other)
  Sender: FDA-Public Use
  Company Number: AU-ELI_LILLY_AND_COMPANY-AU200908000360

PATIENT
  Age: 13 Year
  Sex: Male

DRUGS (3)
  1. STRATTERA [Suspect]
     Dosage: 25 MG, DAILY (1/D)
     Route: 048
     Dates: start: 20081028, end: 20081101
  2. STRATTERA [Suspect]
     Dosage: 40 MG, DAILY (1/D)
     Route: 048
     Dates: start: 20081101, end: 20081101
  3. STRATTERA [Suspect]
     Dosage: 65 MG, DAILY (1/D)
     Route: 048
     Dates: start: 20081101, end: 20081126

REACTIONS (8)
  - AGGRESSION [None]
  - ANGER [None]
  - CRYING [None]
  - IMPULSIVE BEHAVIOUR [None]
  - IRRITABILITY [None]
  - MOOD SWINGS [None]
  - SOCIAL AVOIDANT BEHAVIOUR [None]
  - SUICIDAL IDEATION [None]
